FAERS Safety Report 9564637 (Version 3)
Quarter: 2013Q4

REPORT INFORMATION
  Report Type: Spontaneous
  Country: US (occurrence: US)
  Receive Date: 20130930
  Receipt Date: 20131121
  Transmission Date: 20140711
  Serious: No
  Sender: FDA-Public Use
  Company Number: US-PFIZER INC-2013278095

PATIENT
  Age: 49 Year
  Sex: Male
  Weight: 84.8 kg

DRUGS (9)
  1. CHANTIX [Suspect]
     Indication: SMOKING CESSATION THERAPY
     Dosage: UNK
     Dates: start: 20130420, end: 2013
  2. TRAZODONE [Concomitant]
     Indication: SLEEP DISORDER
     Dosage: ONE AND A HALF TABLET OF 50 MG, DAILY
  3. AVODART [Concomitant]
     Indication: BLADDER DISORDER
     Dosage: 0.5 MG, DAILY
  4. TAMSULOSIN [Concomitant]
     Indication: BLADDER DISORDER
     Dosage: 0.4 MG, DAILY
  5. OMEPRAZOLE [Concomitant]
     Dosage: 40 MG, UNK (TWO TO THREE TIMES A DAY)
  6. METHADONE [Concomitant]
     Indication: BACK DISORDER
     Dosage: 10 MG (2 TABLETS OF 5 MG), 4X/DAY
  7. GABAPENTIN [Concomitant]
     Indication: BACK DISORDER
     Dosage: 600 MG, 4X/DAY
  8. CLINDAMYCIN [Concomitant]
     Dosage: 150 MG, 4X/DAY
  9. BENADRYL [Concomitant]
     Indication: HYPERSENSITIVITY
     Dosage: UNK

REACTIONS (1)
  - Productive cough [Not Recovered/Not Resolved]
